FAERS Safety Report 7243744-9 (Version None)
Quarter: 2011Q1

REPORT INFORMATION
  Report Type: 
  Country: None (occurrence: None)
  Receive Date: 20110125
  Receipt Date: 20110121
  Transmission Date: 20110831
  Serious: No
  Sender: FDA-Public Use
  Company Number: US-PFIZER INC-2011008255

PATIENT
  Sex: Male
  Weight: 83.9 kg

DRUGS (6)
  1. VIAGRA [Interacting]
     Dosage: 100 MG, AS NEEDED
     Route: 048
     Dates: start: 20101115
  2. FISH OIL [Concomitant]
     Dosage: UNK
  3. VIAGRA [Suspect]
     Indication: ERECTILE DYSFUNCTION
     Dosage: 50 MG, AS NEEDED
     Route: 048
     Dates: start: 20050101, end: 20101101
  4. CARVEDILOL [Interacting]
     Indication: HYPERTENSION
     Dosage: UNK
     Dates: end: 20110120
  5. SIMVASTATIN [Interacting]
     Indication: BLOOD CHOLESTEROL INCREASED
     Dosage: UNK
     Dates: end: 20110120
  6. FENOFIBRATE [Interacting]
     Indication: BLOOD TRIGLYCERIDES
     Dosage: UNK
     Dates: end: 20110120

REACTIONS (2)
  - DRUG INEFFECTIVE [None]
  - DRUG INTERACTION [None]
